FAERS Safety Report 9556920 (Version 1)
Quarter: 2013Q3

REPORT INFORMATION
  Report Type: Spontaneous
  Country: US (occurrence: None)
  Receive Date: 20130906
  Receipt Date: 20130906
  Transmission Date: 20140515
  Serious: Yes (Other)
  Sender: FDA-Public Use
  Company Number: 163-POMAL-13051787

PATIENT
  Age: 77 Year
  Sex: Male

DRUGS (1)
  1. POMALYST (POMALIDOMIDE) (4 MILLIGRAM, CAPSULES) [Suspect]
     Indication: PLASMA CELL MYELOMA
     Dosage: 4 MG, 21 IN 28 D, PO
     Route: 048
     Dates: start: 20130508

REACTIONS (8)
  - Hypogeusia [None]
  - Candida infection [None]
  - Oropharyngeal pain [None]
  - Dysphonia [None]
  - Rash [None]
  - Dyspnoea [None]
  - Dizziness [None]
  - Weight decreased [None]
